FAERS Safety Report 9373340 (Version 1)
Quarter: 2013Q2

REPORT INFORMATION
  Report Type: Spontaneous
  Country: FR (occurrence: FR)
  Receive Date: 20130627
  Receipt Date: 20130627
  Transmission Date: 20140414
  Serious: Yes (Other)
  Sender: FDA-Public Use
  Company Number: FR-GLAXOSMITHKLINE-B0902215A

PATIENT
  Sex: 0

DRUGS (4)
  1. REVOLADE [Suspect]
     Indication: THROMBOCYTOPENIA
     Route: 048
  2. PEGINTERFERON ALFA-2A [Concomitant]
     Indication: HEPATITIS C
  3. RIBAVIRIN [Concomitant]
     Indication: HEPATITIS C
  4. ANTIPROTEASE [Concomitant]
     Indication: HEPATITIS C

REACTIONS (2)
  - Hepatic cirrhosis [Unknown]
  - Off label use [Unknown]
